FAERS Safety Report 5752173-6 (Version None)
Quarter: 2008Q2

REPORT INFORMATION
  Report Type: 
  Country: None (occurrence: None)
  Receive Date: 20080529
  Receipt Date: 20070705
  Transmission Date: 20081010
  Serious: Yes (Death, Other)
  Sender: FDA-Public Use
  Company Number: JP-JNJFOC-20070603949

PATIENT
  Age: 70 Year
  Sex: Male

DRUGS (39)
  1. FINIBAX [Suspect]
     Route: 041
  2. FINIBAX [Suspect]
     Indication: INFECTION
     Route: 041
  3. FLUMARIN [Suspect]
     Indication: INFECTION
     Route: 042
  4. PHENOBARBITAL TAB [Suspect]
     Indication: CONVULSION
     Route: 048
  5. SPELEAR [Suspect]
     Indication: SPUTUM RETENTION
     Route: 048
  6. TEGRETOL [Suspect]
     Indication: WOUND COMPLICATION
     Route: 048
  7. LOXONIN [Suspect]
     Route: 048
  8. LOXONIN [Suspect]
     Indication: INTERCOSTAL NEURALGIA
     Route: 048
  9. MAGMITT [Concomitant]
     Indication: CONSTIPATION
     Route: 048
  10. CERCINE [Concomitant]
     Indication: CONVULSION
     Route: 048
  11. AMOBAN [Concomitant]
     Route: 048
  12. AMOBAN [Concomitant]
     Route: 048
  13. AMOBAN [Concomitant]
     Indication: INSOMNIA
     Route: 048
  14. ROHYPNOL [Concomitant]
     Route: 048
  15. ROHYPNOL [Concomitant]
     Route: 048
  16. ROHYPNOL [Concomitant]
     Route: 048
  17. ROHYPNOL [Concomitant]
     Indication: INSOMNIA
     Route: 048
  18. UBRETID [Concomitant]
     Indication: NEUROGENIC BLADDER
     Route: 048
  19. SELBEX [Concomitant]
     Indication: GASTRITIS
     Route: 048
  20. NAPROXEN [Concomitant]
     Indication: PYREXIA
     Route: 048
  21. ASPIRIN [Concomitant]
     Indication: CEREBRAL INFARCTION
     Route: 048
  22. POLARAMINE [Concomitant]
     Indication: PRURITUS
     Route: 048
  23. DISTILLED WATER [Concomitant]
     Indication: THERAPEUTIC GARGLE
     Route: 050
  24. VOLTAREN [Concomitant]
     Route: 065
  25. VOLTAREN [Concomitant]
     Indication: WOUND COMPLICATION
     Route: 065
  26. KETOPROFEN [Concomitant]
     Indication: WOUND COMPLICATION
     Route: 062
  27. LAXOBERON [Concomitant]
     Indication: CONSTIPATION
     Route: 065
  28. RINDERON VG [Concomitant]
     Indication: RASH
     Route: 065
  29. AMINOFLUID [Concomitant]
     Indication: FLUID REPLACEMENT
     Route: 042
  30. SOLU-MEDROL [Concomitant]
     Indication: ASTHMA
     Route: 042
  31. RADICUT [Concomitant]
     Indication: CEREBRAL INFARCTION
     Route: 042
  32. UNKNOWN DRUG [Concomitant]
     Route: 065
  33. UNKNOWN DRUG [Concomitant]
     Indication: STEVENS-JOHNSON SYNDROME
     Route: 065
  34. UNKNOWN DRUG [Concomitant]
     Indication: HEPATIC FUNCTION ABNORMAL
     Route: 065
  35. BISOLVON [Concomitant]
     Route: 048
  36. BISOLVON [Concomitant]
     Indication: SPUTUM RETENTION
     Route: 048
  37. MYSLEE [Concomitant]
     Route: 048
  38. MYSLEE [Concomitant]
     Indication: INSOMNIA
     Route: 048
  39. POTACOL [Concomitant]
     Indication: CARDIOVASCULAR INSUFFICIENCY
     Route: 042

REACTIONS (3)
  - LIVER DISORDER [None]
  - SEPSIS [None]
  - STEVENS-JOHNSON SYNDROME [None]
